FAERS Safety Report 23832446 (Version 1)
Quarter: 2024Q2

REPORT INFORMATION
  Report Type: Spontaneous
  Country: US (occurrence: US)
  Receive Date: 20240508
  Receipt Date: 20240508
  Transmission Date: 20240716
  Serious: No
  Sender: FDA-Public Use
  Company Number: US-SA-SAC20240430000120

PATIENT
  Age: 59 Year
  Sex: Female
  Weight: 54.4 kg

DRUGS (2)
  1. DUPIXENT [Suspect]
     Active Substance: DUPILUMAB
     Indication: Prurigo
     Dosage: 600 MG, 1X
     Route: 058
     Dates: start: 20240424, end: 20240424
  2. CAMPRAL [Concomitant]
     Active Substance: ACAMPROSATE CALCIUM

REACTIONS (2)
  - Dizziness [Not Recovered/Not Resolved]
  - Product use in unapproved indication [Unknown]

NARRATIVE: CASE EVENT DATE: 20240424
